FAERS Safety Report 4867528-1 (Version None)
Quarter: 2005Q4

REPORT INFORMATION
  Report Type: 
  Country: None (occurrence: None)
  Receive Date: 20051222
  Receipt Date: 20051213
  Transmission Date: 20060501
  Serious: Yes (Life-Threatening, Hospitalization, Other)
  Sender: FDA-Public Use
  Company Number: HQWYE001214DEC05

PATIENT
  Age: 18 Year
  Sex: Male
  Weight: 75.1 kg

DRUGS (6)
  1. RAPAMUNE [Suspect]
     Indication: PROPHYLAXIS AGAINST TRANSPLANT REJECTION
     Dosage: 4 MG 1X PER 1 DAY
     Dates: start: 20010731, end: 20040313
  2. NEORAL [Concomitant]
  3. LIPITOR [Concomitant]
  4. PREDNISONE [Concomitant]
  5. PROCARDIA XL [Concomitant]
  6. SEPTRA [Concomitant]

REACTIONS (6)
  - COMPLICATIONS OF TRANSPLANTED KIDNEY [None]
  - DIZZINESS [None]
  - HAEMODIALYSIS [None]
  - NEPHROPATHY [None]
  - PERITONEAL DIALYSIS [None]
  - VOMITING [None]
